FAERS Safety Report 6852051-5 (Version None)
Quarter: 2010Q3

REPORT INFORMATION
  Report Type: 
  Country: None (occurrence: None)
  Receive Date: 20100717
  Receipt Date: 20071105
  Transmission Date: 20110219
  Serious: No
  Sender: FDA-Public Use
  Company Number: US-PFIZER INC-2007092774

PATIENT
  Sex: Female
  Weight: 68 kg

DRUGS (4)
  1. CHANTIX [Suspect]
     Indication: SMOKING CESSATION THERAPY
     Dates: start: 20070727, end: 20070920
  2. PREDNISONE [Concomitant]
     Indication: RHEUMATOID ARTHRITIS
  3. METHOTREXATE [Concomitant]
     Indication: RHEUMATOID ARTHRITIS
  4. MINOCYCLINE [Concomitant]
     Indication: RHEUMATOID ARTHRITIS

REACTIONS (3)
  - ABNORMAL DREAMS [None]
  - HEADACHE [None]
  - SLEEP DISORDER [None]
